FAERS Safety Report 8109992-0 (Version None)
Quarter: 2012Q1

REPORT INFORMATION
  Report Type: 
  Country: None (occurrence: None)
  Receive Date: 20120202
  Receipt Date: 20120123
  Transmission Date: 20120608
  Serious: No
  Sender: FDA-Public Use
  Company Number: US-AMGEN-USASP2011069537

PATIENT
  Age: 31 Year
  Sex: Female
  Weight: 88.435 kg

DRUGS (4)
  1. CLOBEX                             /00337102/ [Concomitant]
     Indication: PSORIASIS
     Route: 061
  2. HUMIRA [Concomitant]
     Dosage: UNK
     Dates: end: 20110101
  3. ENBREL [Suspect]
     Indication: PSORIASIS
     Dosage: 50 MG, 2 TIMES/WK
     Route: 058
     Dates: start: 20111101
  4. ACIPHEX [Concomitant]
     Indication: GASTROOESOPHAGEAL REFLUX DISEASE
     Dosage: UNK
     Route: 048

REACTIONS (3)
  - INJECTION SITE INDURATION [None]
  - INJECTION SITE ERYTHEMA [None]
  - INJECTION SITE NODULE [None]
